APPROVED DRUG PRODUCT: CLINOLIPID 20%
Active Ingredient: OLIVE OIL; SOYBEAN OIL
Strength: 16%(160GM/1000ML);4%  (40GM/1000ML)
Dosage Form/Route: EMULSION;INTRAVENOUS
Application: N204508 | Product #001
Applicant: BAXTER HEALTHCARE CORP
Approved: Oct 3, 2013 | RLD: Yes | RS: Yes | Type: RX

EXCLUSIVITY:
Code: NPP | Date: Apr 24, 2027